FAERS Safety Report 6918663-5 (Version None)
Quarter: 2010Q3

REPORT INFORMATION
  Report Type: 
  Country: None (occurrence: None)
  Receive Date: 20100811
  Receipt Date: 20100803
  Transmission Date: 20110219
  Serious: Yes (Other)
  Sender: FDA-Public Use
  Company Number: CA-PFIZER INC-2010097442

PATIENT
  Age: 61 Year
  Sex: Female

DRUGS (3)
  1. DETROL LA [Suspect]
     Dosage: 4 MG, UNK
     Dates: start: 20100617, end: 20100715
  2. DETROL LA [Suspect]
     Dosage: 4 MG, UNK
     Dates: start: 20100701, end: 20100803
  3. FLUOXETINE [Concomitant]
     Dosage: UNK

REACTIONS (3)
  - DYSPNOEA [None]
  - INTERSTITIAL LUNG DISEASE [None]
  - LUNG NEOPLASM [None]
